FAERS Safety Report 6383295-7 (Version None)
Quarter: 2009Q4

REPORT INFORMATION
  Report Type: 
  Country: None (occurrence: None)
  Receive Date: 20091001
  Receipt Date: 20090918
  Transmission Date: 20100525
  Serious: Yes (Death, Disabling)
  Sender: FDA-Public Use
  Company Number: GB-RANBAXY-2009RR-28194

PATIENT
  Age: 50 Year
  Sex: Female

DRUGS (5)
  1. GABAPENTIN [Suspect]
     Indication: PAIN
     Dosage: 1800 MG, QD
     Route: 048
     Dates: start: 20090812, end: 20090903
  2. ALFENTANIL [Concomitant]
     Indication: PAIN
     Dosage: 80 MG, QD
     Route: 058
     Dates: start: 20090819
  3. DICLOFENAC [Concomitant]
     Indication: PAIN
     Dosage: 150 MG, QD
     Route: 048
  4. KETAMINE HCL [Concomitant]
     Indication: PAIN
     Dosage: 150 MG, QD
     Route: 058
     Dates: start: 20090819
  5. OXYCONTIN [Concomitant]
     Indication: PAIN
     Dosage: 2400 MG, QD
     Route: 048
     Dates: end: 20090819

REACTIONS (2)
  - BLISTER [None]
  - DISEASE PROGRESSION [None]
